FAERS Safety Report 6468837-5 (Version None)
Quarter: 2009Q4

REPORT INFORMATION
  Report Type: 
  Country: None (occurrence: None)
  Receive Date: 20091203
  Receipt Date: 20071219
  Transmission Date: 20100525
  Serious: Yes (Death)
  Sender: FDA-Public Use
  Company Number: IT-ELI_LILLY_AND_COMPANY-IT200609004353

PATIENT
  Age: 75 Year
  Sex: Male
  Weight: 75 kg

DRUGS (2)
  1. XIGRIS [Suspect]
     Indication: SEPTIC SHOCK
     Dosage: 24 MCG/KG/HOUR
     Route: 042
     Dates: start: 20060904, end: 20060905
  2. ENOXAPARIN SODIUM [Concomitant]
     Indication: THROMBOSIS PROPHYLAXIS
     Dosage: 4000 IU, DAILY (1/D)
     Route: 058
     Dates: start: 20060903, end: 20060905

REACTIONS (2)
  - DEATH [None]
  - THROMBOCYTOPENIA [None]
